FAERS Safety Report 18830839 (Version 1)
Quarter: 2021Q1

REPORT INFORMATION
  Report Type: Report from Study
  Country: ES (occurrence: ES)
  Receive Date: 20210203
  Receipt Date: 20210203
  Transmission Date: 20210419
  Serious: Yes (Other)
  Sender: FDA-Public Use
  Company Number: ES-RECORDATI RARE DISEASES-2106216

PATIENT
  Age: 41 Year
  Sex: Female

DRUGS (20)
  1. ENALAPRIL MALEATE. [Concomitant]
     Active Substance: ENALAPRIL MALEATE
     Route: 048
     Dates: start: 20140820
  2. ETHINYL ESTRADIOL\GESTODENE. [Concomitant]
     Active Substance: ETHINYL ESTRADIOL\GESTODENE
     Route: 048
     Dates: start: 20130724
  3. LEVOTHYROXINE. [Concomitant]
     Active Substance: LEVOTHYROXINE
     Route: 048
     Dates: start: 20160712
  4. PEGVISOMANT [Concomitant]
     Active Substance: PEGVISOMANT
     Route: 048
  5. SIGNIFOR LAR [Suspect]
     Active Substance: PASIREOTIDE PAMOATE
     Indication: ACROMEGALY
     Route: 030
     Dates: start: 20180829
  6. METFORMIN [Concomitant]
     Active Substance: METFORMIN HYDROCHLORIDE
     Route: 048
  7. CABERGOLINE. [Concomitant]
     Active Substance: CABERGOLINE
     Route: 048
  8. PEGVISOMANT [Concomitant]
     Active Substance: PEGVISOMANT
     Route: 058
  9. ACETYLSALICYLIC ACID [Concomitant]
     Active Substance: ASPIRIN
     Route: 065
     Dates: start: 20180630
  10. DESLORATADINE. [Concomitant]
     Active Substance: DESLORATADINE
     Route: 048
     Dates: start: 20170124
  11. LEVOTHYROXINE. [Concomitant]
     Active Substance: LEVOTHYROXINE
     Route: 048
  12. PEGVISOMANT [Concomitant]
     Active Substance: PEGVISOMANT
     Route: 048
  13. LEVONORGESTREL. [Concomitant]
     Active Substance: LEVONORGESTREL
     Route: 048
     Dates: start: 20130724
  14. LEVOTHYROXINE. [Concomitant]
     Active Substance: LEVOTHYROXINE
     Route: 048
  15. CABERGOLINE. [Concomitant]
     Active Substance: CABERGOLINE
     Route: 048
  16. ACETYLSALICYLIC ACID [Concomitant]
     Active Substance: ASPIRIN
     Route: 048
     Dates: start: 20161101
  17. CABERGOLINE. [Concomitant]
     Active Substance: CABERGOLINE
     Route: 048
  18. CABERGOLINE. [Concomitant]
     Active Substance: CABERGOLINE
     Route: 048
  19. CABERGOLINE. [Concomitant]
     Active Substance: CABERGOLINE
     Route: 048
  20. CABERGOLINE. [Concomitant]
     Active Substance: CABERGOLINE
     Route: 048

REACTIONS (11)
  - Type 2 diabetes mellitus [Recovering/Resolving]
  - Dizziness [Recovered/Resolved]
  - Dizziness [Recovering/Resolving]
  - Drug ineffective [Recovering/Resolving]
  - Back pain [Recovered/Resolved]
  - Vision blurred [Recovering/Resolving]
  - Vulvovaginal mycotic infection [Recovered/Resolved]
  - Anxiety [Recovering/Resolving]
  - Vitamin D deficiency [Recovering/Resolving]
  - Vomiting [Recovered/Resolved]
  - Back pain [Recovering/Resolving]

NARRATIVE: CASE EVENT DATE: 20180829
